FAERS Safety Report 8590629-1 (Version None)
Quarter: 2012Q3

REPORT INFORMATION
  Report Type: 
  Country: None (occurrence: None)
  Receive Date: 20120731
  Receipt Date: 20120716
  Transmission Date: 20120928
  Serious: Yes (Other)
  Sender: FDA-Public Use
  Company Number: 2012MPI00320

PATIENT

DRUGS (3)
  1. BRENTUXIMAB VEDOTIN (BRENTUXIMAB VEDOTIN) INJECTION [Suspect]
     Indication: PRODUCT USED FOR UNKNOWN INDICATION
  2. KLEXANE (ENOXAPARIN SODIUM) [Concomitant]
  3. COTRIM [Concomitant]

REACTIONS (1)
  - TRANSAMINASES INCREASED [None]
